FAERS Safety Report 15121401 (Version 1)
Quarter: 2018Q3

REPORT INFORMATION
  Report Type: Spontaneous
  Country: DE (occurrence: DE)
  Receive Date: 20180709
  Receipt Date: 20180709
  Transmission Date: 20181010
  Serious: Yes (Congenital Anomaly)
  Sender: FDA-Public Use
  Company Number: DE-PFIZER INC-2017420949

PATIENT
  Sex: Female
  Weight: 3.25 kg

DRUGS (2)
  1. CANIFUG [Concomitant]
     Indication: FUNGAL INFECTION
     Dosage: UNK, 1X/DAY
     Route: 064
     Dates: start: 20180208, end: 20180211
  2. DOSTINEX [Suspect]
     Active Substance: CABERGOLINE
     Indication: PITUITARY TUMOUR BENIGN
     Dosage: UNK, WEEKLY
     Route: 064
     Dates: start: 20170306, end: 20171012

REACTIONS (3)
  - Maternal exposure during pregnancy [Unknown]
  - Developmental hip dysplasia [Unknown]
  - Foot deformity [Unknown]
